FAERS Safety Report 4874006-2 (Version None)
Quarter: 2006Q1

REPORT INFORMATION
  Report Type: 
  Country: None (occurrence: None)
  Receive Date: 20060106
  Receipt Date: 20050426
  Transmission Date: 20060701
  Serious: Yes (Hospitalization)
  Sender: FDA-Public Use
  Company Number: 2005SE02497

PATIENT
  Age: 24006 Day
  Sex: Male
  Weight: 69 kg

DRUGS (22)
  1. BLOPRESS [Suspect]
     Indication: HYPERTENSION
     Route: 048
     Dates: start: 20000101
  2. AO-128(CODE NOT BROKEN) [Suspect]
     Indication: GLUCOSE TOLERANCE IMPAIRED
     Dosage: 0.6 MG OR PLACEBO
     Route: 048
     Dates: start: 20031127, end: 20050413
  3. MARZULENE S [Suspect]
     Indication: PROPHYLAXIS
     Route: 048
     Dates: start: 19970101
  4. ULCERLMIN [Suspect]
     Indication: PROPHYLAXIS
     Route: 048
     Dates: start: 19970101
  5. STROCAIN [Suspect]
     Indication: PROPHYLAXIS
     Route: 048
     Dates: start: 19970101
  6. GLYCYRON [Suspect]
     Indication: HEPATIC FUNCTION ABNORMAL
     Route: 048
     Dates: start: 19980101, end: 20040129
  7. PROHEPARUM [Suspect]
     Indication: HEPATIC FUNCTION ABNORMAL
     Route: 048
     Dates: start: 19980101, end: 20040129
  8. DEPAS [Suspect]
     Indication: INSOMNIA
     Route: 048
     Dates: start: 19990101, end: 20040129
  9. ROHYPNOL [Suspect]
     Indication: INSOMNIA
     Route: 048
     Dates: start: 19990101, end: 20040129
  10. SUNRYTHM [Suspect]
     Indication: VENTRICULAR EXTRASYSTOLES
     Route: 048
     Dates: start: 19980101
  11. SUNRYTHM [Suspect]
     Indication: ATRIAL FIBRILLATION
     Route: 048
     Dates: start: 19980101
  12. SUNRYTHM [Suspect]
     Route: 048
     Dates: start: 20050416, end: 20050609
  13. SUNRYTHM [Suspect]
     Route: 048
     Dates: start: 20050416, end: 20050609
  14. BUFFERIN [Suspect]
     Indication: THROMBOSIS PROPHYLAXIS
     Route: 048
     Dates: start: 20000101
  15. GRANDAXIN [Suspect]
     Indication: AUTONOMIC NERVOUS SYSTEM IMBALANCE
     Route: 048
     Dates: start: 20000101
  16. CONIEL [Suspect]
     Indication: HYPERTENSION
     Route: 048
     Dates: start: 20020101
  17. HARURINE(PIPSISSEWA EXTRACT/JAPANESE ASPEN EXTRACT COMBINED) [Suspect]
     Indication: BENIGN PROSTATIC HYPERPLASIA
     Route: 048
     Dates: start: 20000101
  18. ZESULAN [Suspect]
     Indication: DERMATITIS
     Route: 048
  19. WAKADENIN [Suspect]
     Indication: DERMATITIS
     Route: 048
  20. EXELDERM [Suspect]
     Indication: TINEA BLANCA
     Dosage: OPTIMAL DOSE
     Route: 062
  21. WARFARIN [Suspect]
     Indication: THROMBOSIS PROPHYLAXIS
     Route: 048
     Dates: start: 20040201
  22. PANALDINE [Suspect]
     Indication: THROMBOSIS PROPHYLAXIS
     Route: 048
     Dates: start: 20040201

REACTIONS (3)
  - ATRIAL FIBRILLATION [None]
  - CEREBRAL INFARCTION [None]
  - VENTRICULAR EXTRASYSTOLES [None]
